FAERS Safety Report 4773880-8 (Version None)
Quarter: 2005Q3

REPORT INFORMATION
  Report Type: 
  Country: None (occurrence: None)
  Receive Date: 20050919
  Receipt Date: 20050901
  Transmission Date: 20060218
  Serious: Yes (Other)
  Sender: FDA-Public Use
  Company Number: 12260

PATIENT
  Age: 69 Year
  Sex: Female

DRUGS (1)
  1. METHOTREXATE [Suspect]
     Indication: RHEUMATOID ARTHRITIS

REACTIONS (8)
  - BONE DISORDER [None]
  - GINGIVAL ULCERATION [None]
  - JAW DISORDER [None]
  - LYMPHOMA [None]
  - NECROSIS [None]
  - NO THERAPEUTIC RESPONSE [None]
  - TOOTH DISORDER [None]
  - WEGENER'S GRANULOMATOSIS [None]
